FAERS Safety Report 8291596-0 (Version None)
Quarter: 2012Q2

REPORT INFORMATION
  Report Type: 
  Country: None (occurrence: None)
  Receive Date: 20120417
  Receipt Date: 20120405
  Transmission Date: 20120825
  Serious: Yes (Hospitalization)
  Sender: FDA-Public Use
  Company Number: CA-JNJFOC-20120402644

PATIENT
  Sex: Female
  Weight: 74 kg

DRUGS (4)
  1. REMICADE [Suspect]
     Indication: CROHN'S DISEASE
     Route: 042
     Dates: start: 20100817
  2. REMICADE [Suspect]
     Indication: RHEUMATOID ARTHRITIS
     Route: 042
     Dates: start: 20100817
  3. FLAGYL [Concomitant]
     Dosage: 10 DAYS
     Route: 065
  4. CIPROFLOXACIN HCL [Concomitant]
     Dosage: 10 DAYS
     Route: 065

REACTIONS (1)
  - CROHN'S DISEASE [None]
